FAERS Safety Report 13449424 (Version 2)
Quarter: 2017Q2

REPORT INFORMATION
  Report Type: Report from Study
  Country: CA (occurrence: CA)
  Receive Date: 20170417
  Receipt Date: 20170606
  Transmission Date: 20170830
  Serious: Yes (Death, Other)
  Sender: FDA-Public Use
  Company Number: CA-REGENERON PHARMACEUTICALS, INC.-2017-14368

PATIENT

DRUGS (13)
  1. EYLEA [Suspect]
     Active Substance: AFLIBERCEPT
     Dosage: 50 ?L, ONCE, STUDY EYE: LEFT
     Route: 031
     Dates: start: 20160624, end: 20160624
  2. EYLEA [Suspect]
     Active Substance: AFLIBERCEPT
     Dosage: 50 ?L, ONCE, STUDY EYE: LEFT
     Route: 031
     Dates: start: 20160513, end: 20160513
  3. EYLEA [Suspect]
     Active Substance: AFLIBERCEPT
     Dosage: 50 ?L, ONCE, STUDY EYE: LEFT
     Route: 031
     Dates: start: 20160715, end: 20160715
  4. EYLEA [Suspect]
     Active Substance: AFLIBERCEPT
     Dosage: 50 ?L, ONCE, STUDY EYE: LEFT
     Route: 031
     Dates: start: 20160819, end: 20160819
  5. LUMIGAN [Concomitant]
     Active Substance: BIMATOPROST
     Indication: PRODUCT USED FOR UNKNOWN INDICATION
     Dosage: 1 GTT, QD, RIGHT AND LEFT EYES
     Dates: start: 200903
  6. EYLEA [Suspect]
     Active Substance: AFLIBERCEPT
     Dosage: 50 ?L, ONCE, STUDY EYE: LEFT
     Route: 031
     Dates: start: 20160923, end: 20160923
  7. EYLEA [Suspect]
     Active Substance: AFLIBERCEPT
     Dosage: 50 ?L, ONCE, STUDY EYE: LEFT
     Route: 031
     Dates: start: 20161118, end: 20161118
  8. EYLEA [Suspect]
     Active Substance: AFLIBERCEPT
     Dosage: 50 ?L, ONCE, STUDY EYE: LEFT
     Route: 031
     Dates: start: 20161216, end: 20161216
  9. EYLEA [Suspect]
     Active Substance: AFLIBERCEPT
     Indication: NEOVASCULAR AGE-RELATED MACULAR DEGENERATION
     Dosage: 50 ?L, ONCE, STUDY EYE: LEFT
     Route: 031
     Dates: start: 20160219, end: 20160219
  10. EYLEA [Suspect]
     Active Substance: AFLIBERCEPT
     Dosage: 50 ?L, ONCE, STUDY EYE: LEFT
     Route: 031
     Dates: start: 20160318, end: 20160318
  11. HYDROCHLOROTHIAZIDE. [Concomitant]
     Active Substance: HYDROCHLOROTHIAZIDE
     Indication: PRODUCT USED FOR UNKNOWN INDICATION
     Dosage: 25 MG, QD
     Dates: start: 2012
  12. EYLEA [Suspect]
     Active Substance: AFLIBERCEPT
     Dosage: 50 ?L, ONCE, STUDY EYE: LEFT
     Route: 031
     Dates: start: 20160415, end: 20160415
  13. EYLEA [Suspect]
     Active Substance: AFLIBERCEPT
     Dosage: 50 ?L, ONCE, STUDY EYE: LEFT
     Route: 031
     Dates: start: 20161021, end: 20161021

REACTIONS (1)
  - Cerebrovascular accident [Fatal]

NARRATIVE: CASE EVENT DATE: 20170105
